FAERS Safety Report 4282435-3 (Version None)
Quarter: 2004Q1

REPORT INFORMATION
  Report Type: 
  Country: None (occurrence: None)
  Receive Date: 20040116
  Receipt Date: 20030513
  Transmission Date: 20041129
  Serious: Yes (Hospitalization)
  Sender: FDA-Public Use
  Company Number: 03P-163-0219008-00

PATIENT
  Age: 46 Year
  Sex: Female
  Weight: 119.296 kg

DRUGS (4)
  1. MERIDIA [Suspect]
     Indication: WEIGHT DECREASED
     Dosage: 10 MG, 1 IN 1 D, PER ORAL
     Route: 048
     Dates: start: 20030301, end: 20030510
  2. CETIRIZINE HYDROCHLORIDE [Concomitant]
  3. SINGULAIR [Concomitant]
  4. MAALOX [Concomitant]

REACTIONS (2)
  - CONSTIPATION [None]
  - MASS [None]
